FAERS Safety Report 11189633 (Version 3)
Quarter: 2018Q2

REPORT INFORMATION
  Report Type: Spontaneous
  Country: US (occurrence: US)
  Receive Date: 20150615
  Receipt Date: 20180521
  Transmission Date: 20180711
  Serious: Yes (Hospitalization)
  Sender: FDA-Public Use
  Company Number: US-DSJP-DSU-2015-103258

PATIENT

DRUGS (3)
  1. BENICAR [Suspect]
     Active Substance: OLMESARTAN MEDOXOMIL
     Indication: HYPERTENSION
     Dosage: 20 MG, UNK
     Dates: start: 20020101, end: 20130506
  2. BENICAR [Suspect]
     Active Substance: OLMESARTAN MEDOXOMIL
     Dosage: 40 MG, UNK
     Dates: start: 20020101, end: 20130506
  3. HYDROCHLOROTHIAZIDE. [Concomitant]
     Active Substance: HYDROCHLOROTHIAZIDE
     Indication: PRODUCT USED FOR UNKNOWN INDICATION
     Dosage: 25 MG, UNK

REACTIONS (18)
  - Haematochezia [Unknown]
  - Enteritis [Unknown]
  - Decreased appetite [Unknown]
  - Anal injury [Unknown]
  - Colitis [Unknown]
  - Gastric ulcer [Unknown]
  - Dizziness [Unknown]
  - Large intestine polyp [Unknown]
  - Duodenitis [Unknown]
  - Lactose intolerance [Unknown]
  - Anaemia [Unknown]
  - Acute kidney injury [Unknown]
  - Anxiety [Unknown]
  - Gastric pH decreased [Unknown]
  - Sprue-like enteropathy [Not Recovered/Not Resolved]
  - Gastritis [Unknown]
  - Gastrointestinal bacterial overgrowth [Unknown]
  - Depression [Unknown]

NARRATIVE: CASE EVENT DATE: 201111
